FAERS Safety Report 9123636 (Version 3)
Quarter: 2013Q2

REPORT INFORMATION
  Report Type: Report from Study
  Country: HU (occurrence: HU)
  Receive Date: 20130227
  Receipt Date: 20130624
  Transmission Date: 20140414
  Serious: Yes (Hospitalization)
  Sender: FDA-Public Use
  Company Number: HU-UCBSA-078393

PATIENT
  Age: 62 Year
  Sex: Male
  Weight: 85 kg

DRUGS (5)
  1. CERTOLIZUMAB PEGOL [Suspect]
     Indication: SPONDYLITIS
     Dosage: MED-ID #4003335
     Route: 058
  2. THEOPHYLLIN [Concomitant]
  3. RAMIPRAMIL [Concomitant]
  4. ASTRIX [Concomitant]
  5. METFORMIN [Concomitant]

REACTIONS (1)
  - Anal abscess [Recovered/Resolved]
